FAERS Safety Report 6974817-3 (Version None)
Quarter: 2010Q3

REPORT INFORMATION
  Report Type: 
  Country: None (occurrence: None)
  Receive Date: 20100909
  Receipt Date: 20081205
  Transmission Date: 20110219
  Serious: No
  Sender: FDA-Public Use
  Company Number: US-WYE-H07172308

PATIENT
  Sex: Female
  Weight: 117.59 kg

DRUGS (10)
  1. PRISTIQ [Suspect]
     Indication: DEPRESSION
     Route: 048
     Dates: start: 20081121
  2. AVAPRO [Concomitant]
  3. VITAMIN B [Concomitant]
  4. SAM-E [Concomitant]
  5. LIPITOR [Concomitant]
  6. ZOLPIDEM [Concomitant]
  7. XANAX [Concomitant]
  8. CALCIUM [Concomitant]
  9. LOVAZA [Concomitant]
  10. FOLATE SODIUM [Concomitant]

REACTIONS (4)
  - ENERGY INCREASED [None]
  - INSOMNIA [None]
  - IRRITABILITY [None]
  - MANIA [None]
